FAERS Safety Report 18411833 (Version 6)
Quarter: 2021Q3

REPORT INFORMATION
  Report Type: Report from Study
  Country: US (occurrence: US)
  Receive Date: 20201021
  Receipt Date: 20210729
  Transmission Date: 20211014
  Serious: Yes (Other)
  Sender: FDA-Public Use
  Company Number: NVSC2020US278665

PATIENT
  Sex: Female

DRUGS (2)
  1. TABRECTA [Suspect]
     Active Substance: CAPMATINIB
     Indication: PRODUCT USED FOR UNKNOWN INDICATION
     Dosage: UNK
     Route: 065
  2. TABRECTA [Suspect]
     Active Substance: CAPMATINIB
     Dosage: 400 MG, BID
     Route: 065

REACTIONS (10)
  - Visual impairment [Unknown]
  - Gait disturbance [Unknown]
  - Skin disorder [Unknown]
  - Dyspnoea [Unknown]
  - Joint swelling [Unknown]
  - Skin haemorrhage [Unknown]
  - Peripheral swelling [Unknown]
  - Nausea [Unknown]
  - Ocular neoplasm [Unknown]
  - Fatigue [Unknown]
